FAERS Safety Report 9779174 (Version 1)
Quarter: 2013Q4

REPORT INFORMATION
  Report Type: Spontaneous
  Country: US (occurrence: US)
  Receive Date: 20131223
  Receipt Date: 20131223
  Transmission Date: 20140711
  Serious: No
  Sender: FDA-Public Use
  Company Number: US-ENDO PHARMACEUTICALS INC.-OPCR20130355

PATIENT
  Age: 51 Year
  Sex: Female

DRUGS (2)
  1. OPANA ER 40MG [Suspect]
     Indication: PAIN
     Dosage: UNKNOWN
     Route: 048
     Dates: start: 2012, end: 2013
  2. OPANA ER [Concomitant]
     Indication: PAIN
     Dosage: UNKNOWN
     Route: 048
     Dates: start: 2009, end: 2012

REACTIONS (2)
  - Hypertension [Unknown]
  - Drug effect decreased [Recovered/Resolved]
